FAERS Safety Report 4696224-9 (Version None)
Quarter: 2005Q2

REPORT INFORMATION
  Report Type: 
  Country: None (occurrence: None)
  Receive Date: 20050621
  Receipt Date: 20050615
  Transmission Date: 20051028
  Serious: Yes (Hospitalization)
  Sender: FDA-Public Use
  Company Number: 2005UW09153

PATIENT
  Age: 17884 Day
  Sex: Female
  Weight: 121.8 kg

DRUGS (5)
  1. QUETIAPINE FUMARATE [Suspect]
     Indication: SCHIZOPHRENIA
     Route: 048
     Dates: start: 20040816, end: 20041120
  2. QUETIAPINE FUMARATE [Suspect]
     Route: 048
     Dates: start: 20040816, end: 20041120
  3. COUMADIN [Concomitant]
     Indication: PULMONARY EMBOLISM
  4. COUMADIN [Concomitant]
     Indication: VENA CAVA FILTER INSERTION
  5. HYDROCHLOROTHIAZIDE [Concomitant]
     Indication: HYPERTENSION

REACTIONS (14)
  - ANTICOAGULATION DRUG LEVEL BELOW THERAPEUTIC [None]
  - BLOOD GLUCOSE INCREASED [None]
  - DISEASE RECURRENCE [None]
  - DRUG INEFFECTIVE [None]
  - DYSPNOEA [None]
  - HAEMATOCRIT DECREASED [None]
  - HAEMOGLOBIN DECREASED [None]
  - HYPERTENSION [None]
  - INTERNATIONAL NORMALISED RATIO DECREASED [None]
  - PSYCHOTIC DISORDER [None]
  - PULMONARY EMBOLISM [None]
  - RED BLOOD CELL COUNT DECREASED [None]
  - REFUSAL OF TREATMENT BY PATIENT [None]
  - SCHIZOPHRENIA [None]
